FAERS Safety Report 7033794-X (Version None)
Quarter: 2010Q4

REPORT INFORMATION
  Report Type: 
  Country: None (occurrence: None)
  Receive Date: 20101007
  Receipt Date: 20100928
  Transmission Date: 20110411
  Serious: Yes (Hospitalization)
  Sender: FDA-Public Use
  Company Number: PHHO2010JP15018

PATIENT
  Sex: Male
  Weight: 59 kg

DRUGS (13)
  1. PLACEBO COMP-PLA+ [Suspect]
     Indication: PANCREATIC NEUROENDOCRINE TUMOUR
     Dosage: PLACEBO
     Route: 048
     Dates: start: 20090130
  2. RAD001C [Suspect]
     Indication: PANCREATIC NEUROENDOCRINE TUMOUR
     Dosage: 10 MG/DAY
     Route: 048
     Dates: start: 20090501, end: 20090716
  3. RAD001C [Suspect]
     Dosage: 10 MG/DAY
     Route: 048
     Dates: start: 20090718, end: 20091012
  4. RAD001C [Suspect]
     Dosage: 10 MG/DAY
     Route: 048
     Dates: start: 20091014, end: 20100107
  5. RAD001C [Suspect]
     Dosage: 10 MG/DAY
     Route: 048
     Dates: start: 20100112, end: 20100608
  6. RAD001C [Suspect]
     Dosage: 10 MG/DAY
     Route: 048
     Dates: start: 20100615
  7. ACTONEL [Concomitant]
     Indication: HYPERCALCAEMIA
  8. PROMAC [Concomitant]
     Indication: DYSGEUSIA
  9. PARIET [Concomitant]
     Indication: GASTRITIS
  10. AMARYL [Concomitant]
     Indication: HYPERGLYCAEMIA
  11. LAC B [Concomitant]
     Indication: HYPERGLYCAEMIA
  12. CEREKINON [Concomitant]
     Indication: DIARRHOEA
  13. CRESTOR [Concomitant]
     Indication: HYPERLIPIDAEMIA

REACTIONS (6)
  - BLOOD GASTRIN INCREASED [None]
  - DIARRHOEA [None]
  - GASTROOESOPHAGEAL REFLUX DISEASE [None]
  - INFLUENZA [None]
  - MALIGNANT NEOPLASM PROGRESSION [None]
  - PURULENCE [None]
